FAERS Safety Report 6598070-8 (Version None)
Quarter: 2010Q1

REPORT INFORMATION
  Report Type: 
  Country: None (occurrence: None)
  Receive Date: 20100216
  Receipt Date: 20100112
  Transmission Date: 20100710
  Serious: Yes (Other)
  Sender: FDA-Public Use
  Company Number: MC201000020

PATIENT
  Age: 63 Year
  Sex: Male
  Weight: 90 kg

DRUGS (26)
  1. ANGIOMAX [Suspect]
     Dosage: 27 ML, BOLUS, 63 ML, HR, INTRAVENOUS,
     Route: 042
     Dates: start: 20100112, end: 20100112
  2. ANGIOMAX [Suspect]
     Dosage: 27 ML, BOLUS, 63 ML, HR, INTRAVENOUS,
     Route: 042
     Dates: start: 20100112, end: 20100112
  3. ASPIRIN [Concomitant]
  4. CLOPIDOGREL [Concomitant]
  5. DIAZEPAM [Concomitant]
  6. METFORMIN HCL [Concomitant]
  7. ADALAT [Concomitant]
  8. DIOVAN [Concomitant]
  9. TEGRETOL [Concomitant]
  10. BACLOFEN [Concomitant]
  11. PHYSIOTENS (MOXONIDINE) [Concomitant]
  12. LYRINEL XL (OXYBUTYNIN HYDROCHLORIDE) [Concomitant]
  13. METHYLDOPA [Concomitant]
  14. IBUPROFEN [Concomitant]
  15. SERTRALINE HCL [Concomitant]
  16. NITRAZEPAM [Concomitant]
  17. IMIPRAMINE [Concomitant]
  18. BISOPROLOL (BISOPROLOL HEMIFUMARATE) [Concomitant]
  19. SIMVASTATIN [Concomitant]
  20. FOLIC ACID [Concomitant]
  21. LORATADINE [Concomitant]
  22. ADENOSINE [Concomitant]
  23. DIAMORPHINE (DIAMORPHINE HYDROCHLORIDE) [Concomitant]
  24. METOCLOPRAMIDE (METOCLOPRAMIDE HYDROCHLORIDE) [Concomitant]
  25. LIDOCAINE [Concomitant]
  26. GTN (GLYCERYL TRINITRATE) [Concomitant]

REACTIONS (3)
  - HYPOTENSION [None]
  - INTRACARDIAC THROMBUS [None]
  - OVERDOSE [None]
